FAERS Safety Report 25550004 (Version 1)
Quarter: 2025Q3

REPORT INFORMATION
  Report Type: Spontaneous
  Country: EU (occurrence: EU)
  Receive Date: 20250714
  Receipt Date: 20250714
  Transmission Date: 20251020
  Serious: Yes (Hospitalization, Other)
  Sender: CLINIGEN
  Company Number: None

PATIENT

DRUGS (2)
  1. FOSCAVIR [Suspect]
     Active Substance: FOSCARNET SODIUM
     Indication: Cytomegalovirus infection
     Route: 042
     Dates: start: 20250531, end: 20250612
  2. FOSCAVIR [Suspect]
     Active Substance: FOSCARNET SODIUM
     Route: 042
     Dates: start: 20250615

REACTIONS (4)
  - Generalised tonic-clonic seizure [Recovered/Resolved]
  - Toxic encephalopathy [Not Recovered/Not Resolved]
  - Headache [Recovered/Resolved]
  - Confusional state [Recovered/Resolved]

NARRATIVE: CASE EVENT DATE: 20250609
